FAERS Safety Report 9697289 (Version 1)
Quarter: 2013Q4

REPORT INFORMATION
  Report Type: Spontaneous
  Country: US (occurrence: None)
  Receive Date: 20131119
  Receipt Date: 20131119
  Transmission Date: 20140711
  Serious: Yes (Hospitalization, Disabling)
  Sender: FDA-Public Use
  Company Number: None

PATIENT
  Sex: Male

DRUGS (10)
  1. RANEA(RANOLAZINE EXTENDED RELEASE /TABLETS) [Suspect]
     Indication: CARDIAC DISORDER
     Dosage: 2 PILLS TWICE DAILY BY MOUTH ( 500 MG)
     Route: 048
     Dates: start: 20100911, end: 20120314
  2. METFORMIN [Concomitant]
  3. GLIPIZIDE [Concomitant]
  4. GABAPENTIN [Concomitant]
  5. IRBESARTAN [Concomitant]
  6. HYOSCYAMINE [Concomitant]
  7. ISOSORB [Concomitant]
  8. CILOSTAZOL [Concomitant]
  9. CRESTOR [Concomitant]
  10. ASPIRIN [Concomitant]

REACTIONS (5)
  - Loss of consciousness [None]
  - Fall [None]
  - Cervical vertebral fracture [None]
  - Musculoskeletal disorder [None]
  - Tooth fracture [None]
